FAERS Safety Report 10276661 (Version 2)
Quarter: 2014Q3

REPORT INFORMATION
  Report Type: Spontaneous
  Country: US (occurrence: US)
  Receive Date: 20140703
  Receipt Date: 20140807
  Transmission Date: 20150326
  Serious: Yes (Hospitalization, Other)
  Sender: FDA-Public Use
  Company Number: US-JNJFOC-20140619623

PATIENT
  Age: 66 Year
  Sex: Female

DRUGS (6)
  1. INVEGA SUSTENNA [Suspect]
     Active Substance: PALIPERIDONE PALMITATE
     Indication: SCHIZOPHRENIA
     Route: 030
     Dates: start: 2013, end: 2013
  2. VALIUM [Suspect]
     Active Substance: DIAZEPAM
     Indication: ANXIETY
     Dosage: LOW DOSAGE AS NEEDED
     Route: 048
  3. INVEGA SUSTENNA [Suspect]
     Active Substance: PALIPERIDONE PALMITATE
     Indication: SCHIZOPHRENIA
     Route: 030
     Dates: start: 2013
  4. PROZAC [Concomitant]
     Active Substance: FLUOXETINE HYDROCHLORIDE
     Indication: DEPRESSION
     Route: 048
  5. TRAZODONE [Concomitant]
     Active Substance: TRAZODONE HYDROCHLORIDE
     Indication: SLEEP DISORDER THERAPY
     Route: 048
  6. INVEGA SUSTENNA [Suspect]
     Active Substance: PALIPERIDONE PALMITATE
     Indication: SCHIZOPHRENIA
     Route: 030
     Dates: end: 2013

REACTIONS (12)
  - Nerve injury [Recovered/Resolved]
  - Mouth breathing [Not Recovered/Not Resolved]
  - Overdose [Not Recovered/Not Resolved]
  - Traumatic fracture [Recovered/Resolved]
  - Dyspnoea [Not Recovered/Not Resolved]
  - Facial bones fracture [Recovered/Resolved]
  - Dyskinesia [Recovered/Resolved]
  - Fall [Recovered/Resolved]
  - Wrist fracture [Recovered/Resolved]
  - Laceration [Recovered/Resolved]
  - Balance disorder [Recovered/Resolved]
  - Weight decreased [Not Recovered/Not Resolved]

NARRATIVE: CASE EVENT DATE: 201205
